FAERS Safety Report 14853883 (Version 1)
Quarter: 2018Q2

REPORT INFORMATION
  Report Type: Spontaneous
  Country: US (occurrence: US)
  Receive Date: 20180420
  Receipt Date: 20180420
  Transmission Date: 20180711
  Serious: Yes (Other)
  Sender: FDA-Public Use
  Company Number: None

PATIENT
  Age: 36 Year
  Sex: Male
  Weight: 87.75 kg

DRUGS (5)
  1. HARVONI [Suspect]
     Active Substance: LEDIPASVIR\SOFOSBUVIR
     Indication: HEPATITIS C
     Dosage: ?          QUANTITY:1 TABLET(S);?
     Route: 048
     Dates: start: 20150427, end: 20150615
  2. AMLODIPINE [Concomitant]
     Active Substance: AMLODIPINE BESYLATE
  3. ALPRAZOLAM. [Concomitant]
     Active Substance: ALPRAZOLAM
  4. TESTOSTERONE. [Concomitant]
     Active Substance: TESTOSTERONE
  5. LISINOPRIL. [Concomitant]
     Active Substance: LISINOPRIL

REACTIONS (10)
  - Visual impairment [None]
  - Cognitive disorder [None]
  - Quality of life decreased [None]
  - Anxiety [None]
  - Insomnia [None]
  - Depression [None]
  - Paranoia [None]
  - Dyspepsia [None]
  - Hypertension [None]
  - Blood testosterone decreased [None]

NARRATIVE: CASE EVENT DATE: 20150429
